FAERS Safety Report 24001207 (Version 1)
Quarter: 2024Q2

REPORT INFORMATION
  Report Type: Spontaneous
  Country: US (occurrence: US)
  Receive Date: 20240621
  Receipt Date: 20240621
  Transmission Date: 20240716
  Serious: No
  Sender: FDA-Public Use
  Company Number: US-BRISTOL-MYERS SQUIBB COMPANY-2024-099453

PATIENT
  Age: 88 Year
  Sex: Female
  Weight: 52.5 kg

DRUGS (1)
  1. REVLIMID [Suspect]
     Active Substance: LENALIDOMIDE
     Indication: Hodgkin^s disease
     Route: 048
     Dates: start: 202305

REACTIONS (2)
  - Diarrhoea [Unknown]
  - Off label use [Unknown]
